FAERS Safety Report 21653910 (Version 1)
Quarter: 2022Q4

REPORT INFORMATION
  Report Type: Spontaneous
  Country: IT (occurrence: IT)
  Receive Date: 20221129
  Receipt Date: 20221129
  Transmission Date: 20230112
  Serious: Yes (Hospitalization, Other)
  Sender: FDA-Public Use
  Company Number: None

PATIENT
  Age: 86 Year
  Sex: Male

DRUGS (14)
  1. LANTUS [Suspect]
     Active Substance: INSULIN GLARGINE
     Dosage: 10 ML
     Route: 058
     Dates: start: 20220101
  2. INSULIN LISPRO [Suspect]
     Active Substance: INSULIN LISPRO
     Dosage: UNK UNK, TID
     Route: 058
     Dates: start: 20220101
  3. CANNABIS SATIVA SUBSP. INDICA TOP [Concomitant]
     Active Substance: CANNABIS SATIVA SUBSP. INDICA TOP
     Dosage: UNK
  4. ALLOPURINOL [Concomitant]
     Active Substance: ALLOPURINOL
     Dosage: 150 MG
  5. IRBESARTAN [Concomitant]
     Active Substance: IRBESARTAN
     Dosage: 150 MG
  6. LASIX [Concomitant]
     Active Substance: FUROSEMIDE
     Dosage: 125 MG (125 MG ALTERNATING WITH 50 MG)
  7. OMEGA-3 FATTY ACIDS [Concomitant]
     Active Substance: OMEGA-3 FATTY ACIDS
     Dosage: UNK, OMEGA 3 POLYUNSATURATED
  8. BISOPROLOL FUMARATE [Concomitant]
     Active Substance: BISOPROLOL FUMARATE
     Dosage: UNK
  9. PANTOPRAZOLE [Concomitant]
     Active Substance: PANTOPRAZOLE
     Dosage: 20MG
  10. FENTANYL [Concomitant]
     Active Substance: FENTANYL
     Dosage: UNK
  11. LEVOTHYROXINE SODIUM [Concomitant]
     Active Substance: LEVOTHYROXINE SODIUM
     Dosage: 25 UG
  12. XARELTO [Concomitant]
     Active Substance: RIVAROXABAN
     Dosage: 15 MG
  13. ERYTHROPOIETIN [Concomitant]
     Active Substance: ERYTHROPOIETIN
     Dosage: 5000 IU
  14. ATORVASTATIN [Concomitant]
     Active Substance: ATORVASTATIN
     Dosage: UNK

REACTIONS (1)
  - Syncope [Unknown]

NARRATIVE: CASE EVENT DATE: 20220218
